FAERS Safety Report 6740033-3 (Version None)
Quarter: 2010Q2

REPORT INFORMATION
  Report Type: 
  Country: None (occurrence: None)
  Receive Date: 20100525
  Receipt Date: 20100512
  Transmission Date: 20101027
  Serious: Yes (Disabling, Other)
  Sender: FDA-Public Use
  Company Number: PHHY2010AT28659

PATIENT
  Sex: Female
  Weight: 52 kg

DRUGS (8)
  1. ZOMETA [Suspect]
     Indication: METASTASES TO SPINE
     Dosage: 4 MG, UNK
     Route: 042
     Dates: start: 20040401, end: 20090901
  2. AREDIA [Suspect]
     Indication: METASTASES TO SPINE
     Dosage: UNK
  3. LIORESAL [Concomitant]
     Indication: MUSCLE SPASTICITY
     Dosage: 25 MG, BID
     Route: 048
     Dates: start: 20000101
  4. MYOCHOLINE [Concomitant]
     Indication: BLADDER DISORDER
     Dosage: 1 MG, ONCE/SINGLE
     Route: 048
     Dates: start: 20000101
  5. LACTULOSE [Concomitant]
     Indication: CONSTIPATION
     Dosage: 1 DF DAILY
     Route: 048
     Dates: start: 20000101
  6. THYREX [Concomitant]
     Indication: HYPOTHYROIDISM
     Dosage: 1 DF DAILY
  7. OSTEOCALVIT [Concomitant]
     Indication: OSTEOPOROSIS
     Dosage: UNK
     Dates: start: 20000101
  8. TAMOXIFEN CITRATE [Concomitant]
     Dosage: UNK
     Dates: start: 20070501

REACTIONS (21)
  - ANAEMIA [None]
  - BODY TEMPERATURE INCREASED [None]
  - BONE LESION [None]
  - BONE PAIN [None]
  - CALCINOSIS [None]
  - ERYTHEMA [None]
  - GINGIVAL ATROPHY [None]
  - GINGIVAL ULCERATION [None]
  - JOINT DISLOCATION [None]
  - LEUKOCYTOSIS [None]
  - LYMPH NODE PAIN [None]
  - LYMPHADENOPATHY [None]
  - MASTICATION DISORDER [None]
  - OSTEITIS [None]
  - OSTEOARTHRITIS [None]
  - OSTEONECROSIS OF JAW [None]
  - PAIN [None]
  - PURULENCE [None]
  - SPINAL OSTEOARTHRITIS [None]
  - STOMATITIS [None]
  - SWELLING [None]
